FAERS Safety Report 12578665 (Version 1)
Quarter: 2016Q3

REPORT INFORMATION
  Report Type: Spontaneous
  Country: US (occurrence: None)
  Receive Date: 20160720
  Receipt Date: 20160720
  Transmission Date: 20161109
  Serious: Yes (Other)
  Sender: FDA-Public Use
  Company Number: None

PATIENT
  Age: 32 Year
  Sex: Female
  Weight: 54.43 kg

DRUGS (2)
  1. BOTOX [Concomitant]
     Active Substance: ONABOTULINUMTOXINA
  2. DYSPORT [Suspect]
     Active Substance: ABOBOTULINUMTOXINA

REACTIONS (12)
  - Dysarthria [None]
  - Muscle twitching [None]
  - Tremor [None]
  - Headache [None]
  - Muscular weakness [None]
  - Chest discomfort [None]
  - Memory impairment [None]
  - Aphasia [None]
  - Neuralgia [None]
  - Tachycardia [None]
  - Hypoaesthesia [None]
  - Asthenia [None]

NARRATIVE: CASE EVENT DATE: 20160303
